FAERS Safety Report 20790876 (Version 1)
Quarter: 2022Q2

REPORT INFORMATION
  Report Type: Spontaneous
  Country: CN (occurrence: None)
  Receive Date: 20220505
  Receipt Date: 20220505
  Transmission Date: 20220720
  Serious: Yes (Hospitalization, Other)
  Sender: FDA-Public Use
  Company Number: 2022A167593

PATIENT
  Age: 39 Year
  Sex: Male
  Weight: 114 kg

DRUGS (1)
  1. TICAGRELOR [Suspect]
     Active Substance: TICAGRELOR
     Indication: Chest discomfort
     Route: 048
     Dates: start: 20220410, end: 20220411

REACTIONS (7)
  - Palpitations [Recovering/Resolving]
  - Fatigue [Recovering/Resolving]
  - Heart rate increased [Recovering/Resolving]
  - Oedema peripheral [Unknown]
  - Dyspnoea [Recovering/Resolving]
  - Arrhythmia [Unknown]
  - Cardiac disorder [Unknown]

NARRATIVE: CASE EVENT DATE: 20220411
